FAERS Safety Report 9674632 (Version 1)
Quarter: 2013Q4

REPORT INFORMATION
  Report Type: Spontaneous
  Country: US (occurrence: None)
  Receive Date: 20131106
  Receipt Date: 20131106
  Transmission Date: 20140711
  Serious: No
  Sender: FDA-Public Use
  Company Number: None

PATIENT
  Age: 50 Year
  Sex: Female
  Weight: 68.04 kg

DRUGS (1)
  1. MIRVASO [Suspect]
     Indication: ROSACEA
     Dosage: 1 PEA-SIZED DROP  ONCE DAILY  APPLIED TO A SURFACE, USUALLY THE SKIN
     Dates: start: 20131022, end: 20131028

REACTIONS (3)
  - Flushing [None]
  - Burning sensation [None]
  - Skin warm [None]
